FAERS Safety Report 5232263-7 (Version None)
Quarter: 2007Q1

REPORT INFORMATION
  Report Type: 
  Country: None (occurrence: None)
  Receive Date: 20061204
  Receipt Date: 20060830
  Transmission Date: 20070707
  Serious: No
  Sender: FDA-Public Use
  Company Number: 2006-BP-08579BP

PATIENT
  Age: 86 Year
  Sex: Male

DRUGS (9)
  1. SPIRIVA [Suspect]
     Indication: CHRONIC OBSTRUCTIVE PULMONARY DISEASE
     Dosage: 18 MCG (18 MCG,1 IN 1 D),IH
     Dates: start: 20060501
  2. SPIRIVA [Suspect]
  3. REVATIO (ALL OTHER THERAPEUTIC PRODUCTS) [Concomitant]
  4. ALBUTEROL [Concomitant]
  5. TYLENOL [Concomitant]
  6. ZOCOR [Concomitant]
  7. ZANTAC [Concomitant]
  8. ACYCLOVIR [Concomitant]
  9. ATENOLOL [Concomitant]

REACTIONS (1)
  - DRUG INEFFECTIVE [None]
